FAERS Safety Report 22620828 (Version 1)
Quarter: 2023Q2

REPORT INFORMATION
  Report Type: Spontaneous
  Country: RU (occurrence: RU)
  Receive Date: 20230620
  Receipt Date: 20230620
  Transmission Date: 20230722
  Serious: Yes (Other)
  Sender: FDA-Public Use
  Company Number: RU-ABBVIE-5297695

PATIENT
  Age: 38 Year
  Weight: 81 kg

DRUGS (2)
  1. KALETRA [Suspect]
     Active Substance: LOPINAVIR\RITONAVIR
     Indication: HIV infection
     Dosage: FORM STRENGTH 250 MILLIGRAM
     Route: 048
     Dates: start: 20170526, end: 20190826
  2. LAMIVUDINE [Concomitant]
     Active Substance: LAMIVUDINE
     Indication: HIV infection
     Dates: end: 20190826

REACTIONS (2)
  - Lipoatrophy [Recovered/Resolved]
  - Hypertrophy [Unknown]

NARRATIVE: CASE EVENT DATE: 20190101
